FAERS Safety Report 16712123 (Version 1)
Quarter: 2019Q3

REPORT INFORMATION
  Report Type: Spontaneous
  Country: CA (occurrence: CA)
  Receive Date: 20190816
  Receipt Date: 20190816
  Transmission Date: 20191004
  Serious: Yes (Death, Other)
  Sender: FDA-Public Use
  Company Number: CA-GLAXOSMITHKLINE-CA2019AMR148437

PATIENT
  Age: 58 Year
  Sex: Female

DRUGS (3)
  1. CLOZAPINE. [Suspect]
     Active Substance: CLOZAPINE
     Indication: SCHIZOPHRENIA
     Dosage: 525 MG, QD (1 EVERY 1 DAY)
     Route: 048
  2. LAMOTRIGINE. [Suspect]
     Active Substance: LAMOTRIGINE
     Indication: SCHIZOPHRENIA
     Dosage: 50 MG, QD (1 EVERY 1 DAY)
  3. TOPIRAMATE. [Suspect]
     Active Substance: TOPIRAMATE
     Indication: SCHIZOPHRENIA
     Dosage: 50 MG, QD (1 EVERY 1 DAY)

REACTIONS (7)
  - Electrocardiogram QT prolonged [Fatal]
  - Hypotension [Fatal]
  - Nausea [Fatal]
  - Abdominal distension [Fatal]
  - Acute respiratory failure [Fatal]
  - Vomiting [Fatal]
  - Gastrointestinal haemorrhage [Fatal]
